FAERS Safety Report 9123027 (Version 1)
Quarter: 2013Q1

REPORT INFORMATION
  Report Type: Spontaneous
  Country: US (occurrence: US)
  Receive Date: 20130115
  Receipt Date: 20130115
  Transmission Date: 20140127
  Serious: Yes (Other)
  Sender: FDA-Public Use
  Company Number: US-ASTRAZENECA-2013SE02117

PATIENT
  Age: 61 Year
  Sex: Female
  Weight: 71.7 kg

DRUGS (8)
  1. NEXIUM [Suspect]
     Indication: GASTROOESOPHAGEAL REFLUX DISEASE
     Route: 048
  2. NEXIUM [Suspect]
     Indication: GASTROOESOPHAGEAL REFLUX DISEASE
     Route: 048
  3. PRILOSEC [Suspect]
     Indication: GASTROOESOPHAGEAL REFLUX DISEASE
     Route: 048
  4. CRESTOR [Suspect]
     Indication: BLOOD CHOLESTEROL INCREASED
     Route: 048
  5. ARTIFICIAL TEARS [Concomitant]
  6. CITRICAL [Concomitant]
  7. LODAMAX [Concomitant]
  8. RESTASIS [Concomitant]

REACTIONS (9)
  - Visual impairment [Unknown]
  - Optic nerve disorder [Unknown]
  - Body height decreased [Unknown]
  - Ligament calcification [Unknown]
  - Exostosis [Unknown]
  - Intervertebral disc protrusion [Unknown]
  - Lacrimation increased [Unknown]
  - Breast calcifications [Unknown]
  - Drug ineffective [Unknown]
